FAERS Safety Report 9925744 (Version 2)
Quarter: 2014Q1

REPORT INFORMATION
  Report Type: Spontaneous
  Country: DE (occurrence: DE)
  Receive Date: 20140226
  Receipt Date: 20140314
  Transmission Date: 20141002
  Serious: Yes (Other)
  Sender: FDA-Public Use
  Company Number: DE-OTSUKA-EU-2014-10058

PATIENT
  Age: 64 Year
  Sex: Male
  Weight: 82 kg

DRUGS (4)
  1. PLETAL [Suspect]
     Indication: PERIPHERAL ARTERIAL OCCLUSIVE DISEASE
     Dosage: 100 MG MILLIGRAM(S), BID
     Route: 048
     Dates: start: 20140102
  2. SIMVAHEXAL [Suspect]
     Indication: HYPERLIPIDAEMIA
     Dosage: 30 MG MILLIGRAM(S), DAILY DOSE
     Route: 048
     Dates: start: 20110817, end: 20140203
  3. MICARDIS [Concomitant]
     Indication: HYPERTENSION
     Dosage: 40 MG MILLIGRAM(S), DAILY DOSE
     Route: 048
     Dates: start: 20011022
  4. VAXIGRIP [Concomitant]
     Dosage: UNK, UNKNOWN
     Route: 065
     Dates: start: 20131212

REACTIONS (3)
  - Drug interaction [Unknown]
  - Rash pruritic [Recovered/Resolved]
  - Acne [Recovered/Resolved]
